FAERS Safety Report 23196656 (Version 2)
Quarter: 2023Q4

REPORT INFORMATION
  Report Type: Spontaneous
  Country: NO (occurrence: NO)
  Receive Date: 20231117
  Receipt Date: 20231220
  Transmission Date: 20240110
  Serious: Yes (Other)
  Sender: FDA-Public Use
  Company Number: NO-Gedeon Richter Plc.-2023_GR_011020

PATIENT
  Age: 32 Year
  Sex: Female

DRUGS (5)
  1. ESTRADIOL\NORETHINDRONE ACETATE\RELUGOLIX [Suspect]
     Active Substance: ESTRADIOL\NORETHINDRONE ACETATE\RELUGOLIX
     Indication: Uterine leiomyoma
     Dosage: 1 TAB, QD
     Route: 048
     Dates: start: 202305
  2. ESTRADIOL\NORETHINDRONE ACETATE\RELUGOLIX [Suspect]
     Active Substance: ESTRADIOL\NORETHINDRONE ACETATE\RELUGOLIX
     Indication: Dysmenorrhoea
  3. ESTRADIOL\NORETHINDRONE ACETATE\RELUGOLIX [Suspect]
     Active Substance: ESTRADIOL\NORETHINDRONE ACETATE\RELUGOLIX
     Indication: Heavy menstrual bleeding
  4. ESTRADIOL\NORETHINDRONE ACETATE\RELUGOLIX [Suspect]
     Active Substance: ESTRADIOL\NORETHINDRONE ACETATE\RELUGOLIX
     Indication: Endometriosis
  5. VITAMIN D NOS [Concomitant]
     Active Substance: VITAMIN D NOS
     Indication: Product used for unknown indication
     Dosage: UNK
     Route: 065

REACTIONS (1)
  - Multiple sclerosis [Unknown]

NARRATIVE: CASE EVENT DATE: 20231107
